FAERS Safety Report 9067764 (Version 1)
Quarter: 2013Q1

REPORT INFORMATION
  Report Type: Spontaneous
  Country: FR (occurrence: FR)
  Receive Date: 20130128
  Receipt Date: 20130128
  Transmission Date: 20140127
  Serious: Yes (Other)
  Sender: FDA-Public Use
  Company Number: FR-ASTRAZENECA-2013SE04541

PATIENT
  Age: 779 Month
  Sex: Male

DRUGS (5)
  1. CRESTOR [Suspect]
     Route: 048
     Dates: start: 2011
  2. ADANCOR [Concomitant]
     Route: 048
  3. PLAVIX [Concomitant]
     Route: 048
  4. LODOZ [Concomitant]
     Route: 048
  5. DAFALGAN [Concomitant]
     Route: 048

REACTIONS (2)
  - Tendonitis [Not Recovered/Not Resolved]
  - Gout [Unknown]
